FAERS Safety Report 23560052 (Version 4)
Quarter: 2024Q2

REPORT INFORMATION
  Report Type: Spontaneous
  Country: US (occurrence: US)
  Receive Date: 20240223
  Receipt Date: 20240606
  Transmission Date: 20240715
  Serious: Yes (Other)
  Sender: FDA-Public Use
  Company Number: US-BRISTOL-MYERS SQUIBB COMPANY-2024-026025

PATIENT
  Age: 74 Year
  Sex: Female

DRUGS (2)
  1. LENALIDOMIDE [Suspect]
     Active Substance: LENALIDOMIDE
     Indication: Plasma cell myeloma
     Dosage: FREQUENCY-TAKE 1 CAPSULE BY ?MOUTH DAILY ON ?DAYS 1-21, THEN 7 ?DAYS OFF
     Route: 048
  2. LENALIDOMIDE [Suspect]
     Active Substance: LENALIDOMIDE
     Dosage: TAKE 1 CAPSULE (10MG TOTAL) BY MOUTH EVERY DAY ON DAYS 1-21, 7 DAYS OFF.
     Route: 048

REACTIONS (12)
  - Nausea [Unknown]
  - Decreased appetite [Unknown]
  - Diarrhoea [Unknown]
  - Constipation [Unknown]
  - Depression [Unknown]
  - Psychiatric symptom [Unknown]
  - Arthralgia [Unknown]
  - Muscular weakness [Unknown]
  - Pain [Unknown]
  - Treatment noncompliance [Unknown]
  - COVID-19 [Recovering/Resolving]
  - Rash macular [Unknown]

NARRATIVE: CASE EVENT DATE: 20240201
